FAERS Safety Report 18670360 (Version 2)
Quarter: 2022Q1

REPORT INFORMATION
  Report Type: Spontaneous
  Country: US (occurrence: US)
  Receive Date: 20201228
  Receipt Date: 20220104
  Transmission Date: 20220423
  Serious: No
  Sender: FDA-Public Use
  Company Number: US-COOPERSURGICAL, INC.-US-2020CPS001649

PATIENT
  Age: 19 Year
  Sex: Female
  Weight: 114.74 kg

DRUGS (2)
  1. PARAGARD T 380A [Suspect]
     Active Substance: COPPER
     Indication: Contraception
     Dosage: UNK
     Route: 015
     Dates: start: 20200608
  2. LO LOESTRIN FE [Concomitant]
     Active Substance: ETHINYL ESTRADIOL\NORETHINDRONE ACETATE
     Indication: Abnormal uterine bleeding
     Dosage: UNK
     Route: 065
     Dates: start: 202004

REACTIONS (3)
  - Sensation of foreign body [Not Recovered/Not Resolved]
  - Post procedural haemorrhage [Recovered/Resolved]
  - Device expulsion [Not Recovered/Not Resolved]

NARRATIVE: CASE EVENT DATE: 20200608
